FAERS Safety Report 8932212 (Version 1)
Quarter: 2012Q4

REPORT INFORMATION
  Report Type: 
  Country: US (occurrence: US)
  Receive Date: 20121128
  Receipt Date: 20121128
  Transmission Date: 20130627
  Serious: Yes (Other)
  Sender: FDA-Public Use
  Company Number: US-ELI_LILLY_AND_COMPANY-US201211006704

PATIENT
  Sex: Male

DRUGS (2)
  1. EFFIENT [Suspect]
     Indication: STENT PLACEMENT
     Dosage: 10 mg, qd
  2. PRAVASTATIN [Concomitant]

REACTIONS (6)
  - Stent placement [Unknown]
  - Contusion [Unknown]
  - Photophobia [Unknown]
  - Epistaxis [Unknown]
  - Anxiety [Unknown]
  - Adverse event [Unknown]
